FAERS Safety Report 4987352-9 (Version None)
Quarter: 2006Q2

REPORT INFORMATION
  Report Type: 
  Country: None (occurrence: None)
  Receive Date: 20060501
  Receipt Date: 20050930
  Transmission Date: 20061013
  Serious: Yes (Hospitalization, Disabling)
  Sender: FDA-Public Use
  Company Number: US-MERCK-0510USA02087

PATIENT
  Age: 59 Year
  Sex: Female
  Weight: 77 kg

DRUGS (10)
  1. VIOXX [Suspect]
     Indication: OSTEOARTHRITIS
     Route: 048
     Dates: start: 20010209, end: 20010723
  2. VIOXX [Suspect]
     Route: 048
     Dates: start: 20020312, end: 20030513
  3. VIOXX [Suspect]
     Route: 048
     Dates: start: 20030609, end: 20031104
  4. VIOXX [Suspect]
     Indication: SHOULDER PAIN
     Route: 048
     Dates: start: 20010209, end: 20010723
  5. VIOXX [Suspect]
     Route: 048
     Dates: start: 20020312, end: 20030513
  6. VIOXX [Suspect]
     Route: 048
     Dates: start: 20030609, end: 20031104
  7. AVALIDE [Concomitant]
     Route: 065
  8. PREMPRO [Concomitant]
     Route: 065
  9. NEXIUM [Concomitant]
     Route: 065
  10. LORTAB [Concomitant]
     Route: 065

REACTIONS (11)
  - ANGINA UNSTABLE [None]
  - ARTHROPATHY [None]
  - BACK PAIN [None]
  - CARDIOMEGALY [None]
  - CARPAL TUNNEL SYNDROME [None]
  - CLOSTRIDIUM COLITIS [None]
  - DYSLIPIDAEMIA [None]
  - DYSPNOEA [None]
  - MYOCARDIAL INFARCTION [None]
  - NECK PAIN [None]
  - VAGINAL HAEMORRHAGE [None]
